FAERS Safety Report 13101207 (Version 1)
Quarter: 2017Q1

REPORT INFORMATION
  Report Type: Spontaneous
  Country: US (occurrence: US)
  Receive Date: 20170110
  Receipt Date: 20170110
  Transmission Date: 20170428
  Serious: Yes (Death, Hospitalization)
  Sender: FDA-Public Use
  Company Number: US-BAYER-2017-001434

PATIENT
  Age: 28 Year
  Sex: Male

DRUGS (5)
  1. LIDOCAINE. [Suspect]
     Active Substance: LIDOCAINE
     Dosage: }10 X THE INTENDED DOSE
     Route: 048
  2. MELOXICAM. [Suspect]
     Active Substance: MELOXICAM
  3. LACOSAMIDE. [Suspect]
     Active Substance: LACOSAMIDE
  4. TRAZODONE [Suspect]
     Active Substance: TRAZODONE HYDROCHLORIDE
  5. VENLAFAXINE [Suspect]
     Active Substance: VENLAFAXINE HYDROCHLORIDE

REACTIONS (2)
  - Medication error [Fatal]
  - Seizure [Fatal]
